FAERS Safety Report 10288861 (Version 4)
Quarter: 2014Q3

REPORT INFORMATION
  Report Type: Report from Study
  Country: US (occurrence: US)
  Receive Date: 20140709
  Receipt Date: 20140923
  Transmission Date: 20150326
  Serious: Yes (Death, Hospitalization)
  Sender: FDA-Public Use
  Company Number: US-ACTELION-A-NJ2014-98128

PATIENT
  Age: 59 Year
  Sex: Female

DRUGS (2)
  1. WARFARIN [Concomitant]
     Active Substance: WARFARIN
  2. VELETRI [Suspect]
     Active Substance: EPOPROSTENOL
     Indication: COR PULMONALE CHRONIC
     Dosage: 21 NG/KG, PER MIN
     Route: 042
     Dates: start: 20131217

REACTIONS (6)
  - Death [Fatal]
  - Renal failure [Unknown]
  - Oedema [Recovering/Resolving]
  - Condition aggravated [Unknown]
  - Peritoneal dialysis [Unknown]
  - Fluid retention [Unknown]
